FAERS Safety Report 7050908-6 (Version None)
Quarter: 2010Q4

REPORT INFORMATION
  Report Type: 
  Country: None (occurrence: None)
  Receive Date: 20101019
  Receipt Date: 20100412
  Transmission Date: 20110411
  Serious: Yes (Other)
  Sender: FDA-Public Use
  Company Number: US-ASTRAZENECA-2009UW15668

PATIENT
  Age: 12254 Day
  Sex: Male

DRUGS (7)
  1. SEROQUEL [Suspect]
     Route: 048
     Dates: start: 20050518
  2. ALTACE [Concomitant]
     Dates: start: 20050518
  3. TRICOR [Concomitant]
     Dates: start: 20050518
  4. XANAX [Concomitant]
     Dates: start: 20080530
  5. PALGIC [Concomitant]
     Dosage: 8-80 MG
     Dates: start: 20040326
  6. AMBIEN [Concomitant]
     Dates: start: 20050323
  7. CEPHALEXIN [Concomitant]
     Dates: start: 20050323

REACTIONS (3)
  - DIABETES MELLITUS [None]
  - NEUROPATHY PERIPHERAL [None]
  - VISION BLURRED [None]
